FAERS Safety Report 18455797 (Version 2)
Quarter: 2020Q4

REPORT INFORMATION
  Report Type: Other
  Country: JP (occurrence: JP)
  Receive Date: 20201102
  Receipt Date: 20201108
  Transmission Date: 20210114
  Serious: Yes (Other)
  Sender: FDA-Public Use
  Company Number: JP-ROCHE-2706713

PATIENT
  Age: 36 Year
  Sex: Female

DRUGS (2)
  1. ACTEMRA [Suspect]
     Active Substance: TOCILIZUMAB
     Indication: TAKAYASU^S ARTERITIS
     Dosage: DOSAGE IS UNCERTAIN.
     Route: 041
  2. PREDNISOLONE;TETRYZOLINE HYDROCHLORIDE [Concomitant]
     Indication: TAKAYASU^S ARTERITIS
     Route: 065

REACTIONS (1)
  - Skin ulcer [Recovering/Resolving]
